FAERS Safety Report 12159421 (Version 1)
Quarter: 2016Q1

REPORT INFORMATION
  Report Type: Spontaneous
  Country: US (occurrence: None)
  Receive Date: 20160307
  Receipt Date: 20160307
  Transmission Date: 20160526
  Serious: No
  Sender: FDA-Public Use
  Company Number: None

PATIENT
  Age: 44 Year
  Sex: Male
  Weight: 59.5 kg

DRUGS (2)
  1. TRAZODONE [Suspect]
     Active Substance: TRAZODONE HYDROCHLORIDE
     Indication: BIPOLAR I DISORDER
     Dosage: 1 TAB EVERY DAY PO
     Route: 048
     Dates: start: 20131002, end: 20151005
  2. TRAZODONE [Suspect]
     Active Substance: TRAZODONE HYDROCHLORIDE
     Indication: INSOMNIA
     Dosage: 1 TAB EVERY DAY PO
     Route: 048
     Dates: start: 20131002, end: 20151005

REACTIONS (1)
  - Priapism [None]

NARRATIVE: CASE EVENT DATE: 20151005
